FAERS Safety Report 6979738-8 (Version None)
Quarter: 2010Q3

REPORT INFORMATION
  Report Type: 
  Country: None (occurrence: None)
  Receive Date: 20100914
  Receipt Date: 20100903
  Transmission Date: 20110219
  Serious: Yes (Hospitalization)
  Sender: FDA-Public Use
  Company Number: ES-ELI_LILLY_AND_COMPANY-ES201003001839

PATIENT
  Sex: Male
  Weight: 79 kg

DRUGS (8)
  1. GEMCITABINE HCL [Suspect]
     Indication: NON-SMALL CELL LUNG CANCER
     Dosage: 1250 MG/M2, DAYS 1+8 EVERY 3 WEEKS
     Route: 042
     Dates: start: 20100208, end: 20100222
  2. GEMCITABINE HCL [Suspect]
     Dates: start: 20100302
  3. CETUXIMAB [Suspect]
     Indication: NON-SMALL CELL LUNG CANCER
     Dosage: 400 MG/M2, ONCE
     Route: 042
     Dates: start: 20100208, end: 20100222
  4. CETUXIMAB [Suspect]
     Dosage: 250 MG/M2, WEEKLY (1/W)
     Route: 042
     Dates: start: 20100301
  5. CISPLATIN [Suspect]
     Indication: NON-SMALL CELL LUNG CANCER
     Dosage: 75 MG, DAY ONE
     Route: 042
     Dates: start: 20100208, end: 20100222
  6. CISPLATIN [Suspect]
     Dates: start: 20100302
  7. ACENOCOUMAROL [Concomitant]
     Indication: VENTRICULAR DYSFUNCTION
  8. TINZAPARIN SODIUM [Concomitant]
     Indication: VENTRICULAR DYSFUNCTION
     Dosage: 20000 IU, DAILY (1/D)
     Dates: start: 20100208

REACTIONS (1)
  - EPISTAXIS [None]
